FAERS Safety Report 4883731-9 (Version None)
Quarter: 2006Q1

REPORT INFORMATION
  Report Type: 
  Country: None (occurrence: None)
  Receive Date: 20060118
  Receipt Date: 20050427
  Transmission Date: 20060701
  Serious: Yes (Disabling)
  Sender: FDA-Public Use
  Company Number: US-ROCHE-403600

PATIENT
  Age: 44 Year
  Sex: Female

DRUGS (2)
  1. PEGASYS [Suspect]
     Dosage: STRENGTH REPORTED AS 180 MCG/0.5 ML.
     Route: 058
     Dates: start: 20041111, end: 20051007
  2. COPEGUS [Suspect]
     Dosage: REPORTED DOSAGE: 400 MG AND 600 MG.
     Route: 048
     Dates: start: 20041111, end: 20051007

REACTIONS (26)
  - AMNESIA [None]
  - ANOREXIA [None]
  - BALANCE DISORDER [None]
  - BLINDNESS [None]
  - DEPRESSION [None]
  - DIPLOPIA [None]
  - ECCHYMOSIS [None]
  - FATIGUE [None]
  - HAEMOGLOBIN DECREASED [None]
  - HAEMORRHAGE [None]
  - HEADACHE [None]
  - INFECTION [None]
  - LARYNGITIS [None]
  - NASAL SEPTUM PERFORATION [None]
  - NASAL ULCER [None]
  - NAUSEA [None]
  - NEUTROPHIL COUNT DECREASED [None]
  - ORAL PAIN [None]
  - PAIN [None]
  - PLATELET COUNT DECREASED [None]
  - PYREXIA [None]
  - RHINITIS [None]
  - SINUS HEADACHE [None]
  - SINUSITIS [None]
  - WEIGHT DECREASED [None]
  - WHITE BLOOD CELL COUNT DECREASED [None]
